FAERS Safety Report 18074119 (Version 1)
Quarter: 2020Q3

REPORT INFORMATION
  Report Type: Spontaneous
  Country: TZ (occurrence: TZ)
  Receive Date: 20200727
  Receipt Date: 20200727
  Transmission Date: 20201103
  Serious: Yes (Life-Threatening, Other)
  Sender: FDA-Public Use
  Company Number: TZ-GLAXOSMITHKLINE-US2020GSK137403

PATIENT
  Age: 31 Year
  Sex: Female

DRUGS (13)
  1. DOXORUBICIN [Suspect]
     Active Substance: DOXORUBICIN
     Indication: KAPOSI^S SARCOMA
     Dosage: UNK (25?30 MG/M2 EVERY 3 WEEK CYCLE)
     Dates: start: 201604
  2. COTRIMOXAZOLE [Suspect]
     Active Substance: SULFAMETHOXAZOLE\TRIMETHOPRIM
     Indication: PROPHYLAXIS
     Dosage: UNK
     Dates: start: 201604
  3. RANITIDINE. [Suspect]
     Active Substance: RANITIDINE
     Indication: ANAPHYLAXIS PROPHYLAXIS
     Dosage: UNK
     Dates: start: 2016
  4. LAMIVUDINE. [Suspect]
     Active Substance: LAMIVUDINE
     Indication: HIV INFECTION
     Dosage: UNK
     Dates: start: 2016
  5. VINCRISTINE [Suspect]
     Active Substance: VINCRISTINE
     Indication: KAPOSI^S SARCOMA
     Dosage: UNK (SINGLE CYCLE OF 1.4 MG/M2 FOLLOWED BY INTENSIFIED CYCLE OF ABV EVERY 3 WEEKS)
     Dates: start: 201604
  6. PACLITAXEL. [Suspect]
     Active Substance: PACLITAXEL
     Indication: KAPOSI^S SARCOMA
     Dosage: UNK (135 MG/M2)
     Dates: start: 2016
  7. DEXAMETHASONE. [Suspect]
     Active Substance: DEXAMETHASONE
     Indication: ANAPHYLAXIS PROPHYLAXIS
     Dosage: UNK
     Dates: start: 2016
  8. TENOFOVIR DISOPROXIL FUMARATE. [Suspect]
     Active Substance: TENOFOVIR DISOPROXIL FUMARATE
     Indication: HIV INFECTION
     Dosage: UNK
     Dates: start: 2016
  9. BLEOMYCIN [Suspect]
     Active Substance: BLEOMYCIN SULFATE
     Indication: KAPOSI^S SARCOMA
     Dosage: UNK (SINGLE CYCLE OF 15 UNITS/M2 FOLLOWED BY INTENSIFIED CYCLE OF ABV EVERY 3 WEEKS)
     Dates: start: 201604
  10. FLUCONAZOLE. [Suspect]
     Active Substance: FLUCONAZOLE
     Indication: ORAL CANDIDIASIS
     Dosage: UNK
     Route: 048
     Dates: start: 201604
  11. VINCRISTINE [Suspect]
     Active Substance: VINCRISTINE
     Dosage: 2 MG
  12. CHLORPHENIRAMINE. [Suspect]
     Active Substance: CHLORPHENIRAMINE
     Indication: ANAPHYLAXIS PROPHYLAXIS
     Dosage: UNK
     Dates: start: 2016
  13. EFAVIRENZ. [Suspect]
     Active Substance: EFAVIRENZ
     Indication: HIV INFECTION
     Dosage: UNK
     Dates: start: 2016

REACTIONS (15)
  - Immune reconstitution inflammatory syndrome associated Kaposi^s sarcoma [Recovered/Resolved]
  - Dysphagia [Recovered/Resolved]
  - Exposure via breast milk [Unknown]
  - Abdominal pain [Recovered/Resolved]
  - Haematochezia [Recovered/Resolved]
  - Lymphadenopathy [Recovered/Resolved]
  - Exposure during pregnancy [Unknown]
  - Live birth [Unknown]
  - Skin lesion [Recovered/Resolved]
  - Dyspnoea [Recovered/Resolved]
  - Oral candidiasis [Recovered/Resolved]
  - Condition aggravated [Recovered/Resolved]
  - Obstructive airways disorder [Recovered/Resolved]
  - Haematemesis [Recovered/Resolved]
  - Kaposi^s sarcoma [Recovered/Resolved]

NARRATIVE: CASE EVENT DATE: 2016
